FAERS Safety Report 4607009-3 (Version None)
Quarter: 2005Q1

REPORT INFORMATION
  Report Type: 
  Country: None (occurrence: None)
  Receive Date: 20050310
  Receipt Date: 20050303
  Transmission Date: 20050727
  Serious: Yes (Other)
  Sender: FDA-Public Use
  Company Number: 2005040674

PATIENT
  Sex: Male
  Weight: 95.2554 kg

DRUGS (7)
  1. NEURONTIN [Suspect]
     Indication: RELAXATION THERAPY
     Dosage: 1800 MG(600 MG, 3 IN 1 D), ORAL
     Route: 048
  2. ZOLPIDEM TARTRATE [Concomitant]
  3. ALPRAZOLAM [Concomitant]
  4. FLUOXETINE HYDROCHLORIDE [Concomitant]
  5. SIMVASTATIN [Concomitant]
  6. AMITHRIPTYLINE HYDROCHLORIDE (AMITRIPTYLINE HYDROCHLORIDE) [Concomitant]
  7. GINKO BILOBA (KINKGO BILOBA) [Concomitant]

REACTIONS (1)
  - VISUAL ACUITY REDUCED [None]
